FAERS Safety Report 9342360 (Version 1)
Quarter: 2013Q2

REPORT INFORMATION
  Report Type: Spontaneous
  Country: US (occurrence: None)
  Receive Date: 20130607
  Receipt Date: 20130607
  Transmission Date: 20140414
  Serious: Yes (Hospitalization)
  Sender: FDA-Public Use
  Company Number: 54973 AE # 1380

PATIENT
  Age: 11 Month
  Sex: Female

DRUGS (1)
  1. HYLAND^S BABY TEETHING TABLETS [Suspect]
     Indication: TEETHING
     Dosage: 2-3 TABS/ 2-3X/DAY/1-2 DAY

REACTIONS (5)
  - Convulsion [None]
  - Crying [None]
  - Hyperventilation [None]
  - Musculoskeletal stiffness [None]
  - Electrolyte imbalance [None]
